FAERS Safety Report 13241910 (Version 2)
Quarter: 2017Q2

REPORT INFORMATION
  Report Type: Spontaneous
  Country: US (occurrence: US)
  Receive Date: 20170217
  Receipt Date: 20170420
  Transmission Date: 20170830
  Serious: No
  Sender: FDA-Public Use
  Company Number: US-PFIZER INC-2017071090

PATIENT
  Age: 78 Year
  Sex: Female

DRUGS (18)
  1. CELEBREX [Suspect]
     Active Substance: CELECOXIB
     Dosage: UNK
  2. NABUMETONE. [Suspect]
     Active Substance: NABUMETONE
     Dosage: UNK
  3. REMICADE [Suspect]
     Active Substance: INFLIXIMAB
     Dosage: UNK
  4. KETOROLAC TROMETHAMINE. [Suspect]
     Active Substance: KETOROLAC TROMETHAMINE
  5. BLEPH-10 [Suspect]
     Active Substance: SULFACETAMIDE SODIUM
     Dosage: UNK
  6. IMURAN [Suspect]
     Active Substance: AZATHIOPRINE
     Dosage: UNK
  7. DEMEROL [Suspect]
     Active Substance: MEPERIDINE HYDROCHLORIDE
     Dosage: UNK
  8. GOLD SODIUM THIOMALATE [Suspect]
     Active Substance: GOLD SODIUM THIOMALATE
     Dosage: UNK
  9. RELAFEN [Suspect]
     Active Substance: NABUMETONE
     Dosage: UNK
  10. TRANSDERM SCOP [Suspect]
     Active Substance: SCOPOLAMINE
     Dosage: UNK
  11. AZATHIOPRINE. [Suspect]
     Active Substance: AZATHIOPRINE
     Dosage: UNK
  12. SCOPOLAMINE HYDROBROMIDE. [Suspect]
     Active Substance: SCOPOLAMINE HYDROBROMIDE
     Dosage: UNK
  13. SODIUM SULAMYD [Suspect]
     Active Substance: SULFACETAMIDE SODIUM
     Dosage: UNK
  14. SULFAMETHOXAZOLE [Suspect]
     Active Substance: SULFAMETHOXAZOLE
     Dosage: UNK
  15. PLAQUENIL [Suspect]
     Active Substance: HYDROXYCHLOROQUINE SULFATE
     Dosage: UNK
  16. MEPERIDINE HCL [Suspect]
     Active Substance: MEPERIDINE HYDROCHLORIDE
     Dosage: UNK
  17. RISEDRONATE SODIUM. [Suspect]
     Active Substance: RISEDRONATE SODIUM
     Dosage: UNK
  18. VIOXX [Suspect]
     Active Substance: ROFECOXIB
     Dosage: UNK

REACTIONS (1)
  - Drug hypersensitivity [Unknown]
